FAERS Safety Report 11871559 (Version 1)
Quarter: 2015Q4

REPORT INFORMATION
  Report Type: Spontaneous
  Country: US (occurrence: None)
  Receive Date: 20151224
  Receipt Date: 20151224
  Transmission Date: 20160305
  Serious: No
  Sender: FDA-Public Use
  Company Number: None

PATIENT
  Age: 77 Year
  Sex: Male

DRUGS (13)
  1. ATORVASTATIN [Concomitant]
     Active Substance: ATORVASTATIN
  2. OXYCODONE [Concomitant]
     Active Substance: OXYCODONE
  3. ABIRATERONE [Concomitant]
     Active Substance: ABIRATERONE
  4. CEFAZOLIN [Concomitant]
     Active Substance: CEFAZOLIN
  5. GABAPENTIN. [Concomitant]
     Active Substance: GABAPENTIN
  6. HEPARIN [Concomitant]
     Active Substance: HEPARIN SODIUM
  7. LANSOPRAZOLE. [Concomitant]
     Active Substance: LANSOPRAZOLE
  8. LANTUS [Suspect]
     Active Substance: INSULIN GLARGINE
     Indication: HYPERGLYCAEMIA
     Route: 058
     Dates: start: 20151001, end: 20151005
  9. BUSPIRONE [Concomitant]
     Active Substance: BUSPIRONE HYDROCHLORIDE
  10. DILTIAZEM [Concomitant]
     Active Substance: DILTIAZEM
  11. FUROSEMIDE. [Concomitant]
     Active Substance: FUROSEMIDE
  12. METOCLOPRAMIDE. [Concomitant]
     Active Substance: METOCLOPRAMIDE
  13. RANITIDINE [Concomitant]
     Active Substance: RANITIDINE\RANITIDINE HYDROCHLORIDE

REACTIONS (1)
  - Blood glucose decreased [None]

NARRATIVE: CASE EVENT DATE: 20151001
